FAERS Safety Report 9269715 (Version 1)
Quarter: 2013Q2

REPORT INFORMATION
  Report Type: Report from Study
  Country: CA (occurrence: CA)
  Receive Date: 20130503
  Receipt Date: 20130503
  Transmission Date: 20140414
  Serious: Yes (Other)
  Sender: FDA-Public Use
  Company Number: CA-ABBOTT-13P-028-1075852-00

PATIENT
  Sex: Female
  Weight: 74 kg

DRUGS (3)
  1. HUMIRA [Suspect]
     Indication: CROHN^S DISEASE
     Route: 058
     Dates: start: 20121116, end: 20130322
  2. IMURAN [Suspect]
     Dates: start: 201208, end: 2013
  3. SEASONALE [Concomitant]
     Indication: ORAL CONTRACEPTION
     Dates: start: 201302

REACTIONS (4)
  - Neck pain [Recovered/Resolved]
  - Meningitis herpes [Recovered/Resolved]
  - Headache [Recovered/Resolved]
  - Photophobia [Recovered/Resolved]
